FAERS Safety Report 13253472 (Version 1)
Quarter: 2017Q1

REPORT INFORMATION
  Report Type: Spontaneous
  Country: JP (occurrence: JP)
  Receive Date: 20170220
  Receipt Date: 20170220
  Transmission Date: 20170428
  Serious: Yes (Other)
  Sender: FDA-Public Use
  Company Number: JP-MALLINCKRODT-T201505293

PATIENT
  Age: 50 Year
  Sex: Female
  Weight: 45 kg

DRUGS (16)
  1. METHADONE [Suspect]
     Active Substance: METHADONE HYDROCHLORIDE
     Indication: CANCER PAIN
     Dosage: 5 MG, (15 MG DAILY DOSE)
     Route: 048
     Dates: start: 20150901, end: 20150907
  2. OXYNORM [Suspect]
     Active Substance: OXYCODONE HYDROCHLORIDE
     Indication: PRODUCT USED FOR UNKNOWN INDICATION
     Dosage: 10-15MG PRN
     Route: 048
     Dates: start: 20150831
  3. LENDORMIN [Concomitant]
     Active Substance: BROTIZOLAM
     Dosage: 0.25 MG
     Route: 048
     Dates: start: 20150909, end: 20150909
  4. LYRICA [Concomitant]
     Active Substance: PREGABALIN
     Indication: ANALGESIC THERAPY
     Dosage: 200 MG
     Route: 048
     Dates: end: 20151006
  5. SERENACE [Concomitant]
     Active Substance: HALOPERIDOL
     Dosage: 2.5 MG
     Route: 051
     Dates: start: 20150904, end: 20151022
  6. ROHYPNOL [Concomitant]
     Active Substance: FLUNITRAZEPAM
     Dosage: 1 MG
     Route: 051
     Dates: start: 20150904, end: 20150909
  7. SENNOSIDE [Concomitant]
     Active Substance: SENNOSIDES
     Dosage: 12 MG
     Route: 048
     Dates: start: 20150915, end: 20151005
  8. METHADONE [Suspect]
     Active Substance: METHADONE HYDROCHLORIDE
     Dosage: 10 MG, (30 MG DAILY DOSE)
     Route: 048
     Dates: start: 20150907, end: 20150927
  9. BELSOMRA [Concomitant]
     Active Substance: SUVOREXANT
     Dosage: 15MG
     Route: 048
     Dates: start: 20150910, end: 20150910
  10. KETALAR [Concomitant]
     Active Substance: KETAMINE HYDROCHLORIDE
     Indication: ANALGESIC THERAPY
     Dosage: 50 MG
     Route: 051
     Dates: start: 20150903, end: 20151023
  11. GRAMALIL [Concomitant]
     Active Substance: TIAPRIDE HYDROCHLORIDE
     Dosage: 50 MG
     Route: 048
     Dates: start: 20150910, end: 20151005
  12. METHADONE [Suspect]
     Active Substance: METHADONE HYDROCHLORIDE
     Dosage: 25 MG DAILY DOSE
     Route: 048
     Dates: start: 20150928, end: 20151005
  13. CELECOX [Concomitant]
     Active Substance: CELECOXIB
     Indication: ANALGESIC THERAPY
     Dosage: 400 MG
     Route: 048
     Dates: end: 20151006
  14. DECADRON [Concomitant]
     Active Substance: DEXAMETHASONE
     Dosage: 6.6 MG
     Route: 051
     Dates: start: 20150910
  15. MAGMITT [Concomitant]
     Active Substance: MAGNESIUM OXIDE
     Dosage: UNK
     Route: 048
     Dates: end: 20151005
  16. GASTER [Concomitant]
     Active Substance: FAMOTIDINE
     Dosage: 20 MG
     Route: 051
     Dates: start: 20150910

REACTIONS (2)
  - Delirium [Recovered/Resolved]
  - Somnolence [Recovering/Resolving]

NARRATIVE: CASE EVENT DATE: 20150909
